FAERS Safety Report 15902119 (Version 1)
Quarter: 2019Q1

REPORT INFORMATION
  Report Type: Spontaneous
  Country: JP (occurrence: JP)
  Receive Date: 20190201
  Receipt Date: 20190201
  Transmission Date: 20190417
  Serious: Yes (Other)
  Sender: FDA-Public Use
  Company Number: JP-NOVOPROD-624319

PATIENT
  Sex: Male
  Weight: 3.45 kg

DRUGS (2)
  1. LEVEMIR [Suspect]
     Active Substance: INSULIN DETEMIR
     Indication: TYPE 1 DIABETES MELLITUS
     Dosage: UNK
     Route: 064
  2. NOVORAPID [Suspect]
     Active Substance: INSULIN ASPART
     Indication: TYPE 1 DIABETES MELLITUS
     Dosage: UNK
     Route: 064

REACTIONS (6)
  - Haemorrhage intracranial [Unknown]
  - Foetal exposure during pregnancy [Recovered/Resolved]
  - Jaundice neonatal [Unknown]
  - Protein C deficiency [Unknown]
  - Hypoglycaemia neonatal [Unknown]
  - Convulsion neonatal [Unknown]
